FAERS Safety Report 25172419 (Version 1)
Quarter: 2025Q2

REPORT INFORMATION
  Report Type: Spontaneous
  Country: US (occurrence: None)
  Receive Date: 20250407
  Receipt Date: 20250407
  Transmission Date: 20250716
  Serious: No
  Sender: FDA-CTU
  Company Number: None

PATIENT
  Age: 19 Year
  Sex: Female

DRUGS (3)
  1. ISOTRETINOIN [Suspect]
     Active Substance: ISOTRETINOIN
     Indication: Acne
     Dosage: FREQUENCY : TWICE A DAY;?
     Route: 048
     Dates: start: 20240819, end: 20250207
  2. Lo Estrin [Concomitant]
     Dates: start: 20240719, end: 20250407
  3. WELLBUTRIN [Concomitant]
     Active Substance: BUPROPION HYDROCHLORIDE
     Dates: end: 20250207

REACTIONS (3)
  - Myalgia [None]
  - Pain in jaw [None]
  - Arthralgia [None]

NARRATIVE: CASE EVENT DATE: 20241021
